FAERS Safety Report 24912540 (Version 1)
Quarter: 2025Q1

REPORT INFORMATION
  Report Type: Report from Study
  Country: US (occurrence: US)
  Receive Date: 20250131
  Receipt Date: 20250131
  Transmission Date: 20250408
  Serious: Yes (Other)
  Sender: PFIZER
  Company Number: US-PFIZER INC-202500020692

PATIENT
  Age: 80 Year
  Sex: Female

DRUGS (8)
  1. BRAFTOVI [Suspect]
     Active Substance: ENCORAFENIB
     Dosage: 300 MG CAPSULE ORALLY DAILY
     Route: 048
     Dates: start: 202307
  2. LORATADINE [Concomitant]
     Active Substance: LORATADINE
  3. AMLODIPINE [Concomitant]
     Active Substance: AMLODIPINE BESYLATE
  4. CHLORTHALIDONE [Concomitant]
     Active Substance: CHLORTHALIDONE
  5. LISINOPRIL [Concomitant]
     Active Substance: LISINOPRIL
  6. PROCHLORPERAZINE [Concomitant]
     Active Substance: PROCHLORPERAZINE
  7. ROSUVASTATIN [Concomitant]
     Active Substance: ROSUVASTATIN
  8. VECTIBIX [Concomitant]
     Active Substance: PANITUMUMAB

REACTIONS (2)
  - Skin cancer [Recovered/Resolved]
  - Dermatitis acneiform [Not Recovered/Not Resolved]
